FAERS Safety Report 25660243 (Version 1)
Quarter: 2025Q3

REPORT INFORMATION
  Report Type: Report from Study
  Country: US (occurrence: US)
  Receive Date: 20250808
  Receipt Date: 20250808
  Transmission Date: 20251021
  Serious: Yes (Hospitalization)
  Sender: MYLAN
  Company Number: US-MYLANLABS-2025M1031227

PATIENT
  Sex: Female
  Weight: 55.79 kg

DRUGS (3)
  1. GABAPENTIN [Suspect]
     Active Substance: GABAPENTIN
     Indication: Pain
  2. GABAPENTIN [Suspect]
     Active Substance: GABAPENTIN
     Indication: Rash
  3. GABAPENTIN [Suspect]
     Active Substance: GABAPENTIN
     Indication: Pruritus

REACTIONS (4)
  - Hospitalisation [Unknown]
  - Feeling drunk [Unknown]
  - Dizziness [Unknown]
  - Off label use [Unknown]
